FAERS Safety Report 24940481 (Version 1)
Quarter: 2025Q1

REPORT INFORMATION
  Report Type: Spontaneous
  Country: AT (occurrence: AT)
  Receive Date: 20250207
  Receipt Date: 20250207
  Transmission Date: 20250408
  Serious: Yes (Hospitalization, Other)
  Sender: JOHNSON AND JOHNSON
  Company Number: AT-ABBVIE-6109262

PATIENT
  Age: 21 Year
  Sex: Female

DRUGS (13)
  1. STELARA [Suspect]
     Active Substance: USTEKINUMAB
     Indication: Product used for unknown indication
     Route: 058
     Dates: start: 202305, end: 202312
  2. RINVOQ [Suspect]
     Active Substance: UPADACITINIB
     Indication: Colitis ulcerative
     Route: 048
     Dates: start: 202304, end: 202305
  3. SULFAMETHOXAZOLE\TRIMETHOPRIM [Concomitant]
     Active Substance: SULFAMETHOXAZOLE\TRIMETHOPRIM
     Indication: Product used for unknown indication
  4. VANCOMYCIN [Concomitant]
     Active Substance: VANCOMYCIN
     Indication: Clostridium difficile infection
     Dates: start: 20240125
  5. VANCOMYCIN [Concomitant]
     Active Substance: VANCOMYCIN
     Dates: start: 202304
  6. VALGANCICLOVIR [Concomitant]
     Active Substance: VALGANCICLOVIR
     Indication: Cytomegalovirus infection
  7. PREDNISOLONE [Concomitant]
     Active Substance: PREDNISOLONE
     Indication: Product used for unknown indication
  8. TAZOBACTAM [Concomitant]
     Active Substance: TAZOBACTAM
     Indication: Product used for unknown indication
  9. CYCLOSPORINE [Concomitant]
     Active Substance: CYCLOSPORINE
     Indication: Product used for unknown indication
     Dosage: FREQUENCY TEXT: 1-0-1
     Route: 048
     Dates: start: 20230419, end: 20230427
  10. METHYLPREDNISOLONE [Concomitant]
     Active Substance: METHYLPREDNISOLONE
     Indication: Product used for unknown indication
  11. MIRIKIZUMAB [Concomitant]
     Active Substance: MIRIKIZUMAB
     Indication: Product used for unknown indication
     Route: 042
     Dates: start: 20240208
  12. MIRIKIZUMAB [Concomitant]
     Active Substance: MIRIKIZUMAB
     Dosage: LAST ADMIN DATE: 2024
     Route: 058
     Dates: start: 20240307
  13. MIRIKIZUMAB [Concomitant]
     Active Substance: MIRIKIZUMAB
     Route: 058
     Dates: start: 20240404

REACTIONS (21)
  - Inflammation [Unknown]
  - Faecal calprotectin increased [Recovered/Resolved]
  - Therapeutic product effect incomplete [Not Recovered/Not Resolved]
  - Remission not achieved [Not Recovered/Not Resolved]
  - Chills [Not Recovered/Not Resolved]
  - Abnormal faeces [Recovered/Resolved]
  - Pyrexia [Not Recovered/Not Resolved]
  - Haematochezia [Recovered/Resolved]
  - Diarrhoea haemorrhagic [Recovered/Resolved]
  - Pyrexia [Recovered/Resolved]
  - Leukocytosis [Unknown]
  - C-reactive protein increased [Not Recovered/Not Resolved]
  - Weight decreased [Unknown]
  - Frequent bowel movements [Recovered/Resolved]
  - Colitis ulcerative [Recovered/Resolved]
  - Hyperhidrosis [Recovered/Resolved]
  - Diarrhoea haemorrhagic [Recovered/Resolved]
  - Haematochezia [Unknown]
  - Haematochezia [Unknown]
  - Faecal calprotectin increased [Not Recovered/Not Resolved]
  - Therapeutic product effect decreased [Unknown]

NARRATIVE: CASE EVENT DATE: 20230501
